FAERS Safety Report 7658234-9 (Version None)
Quarter: 2011Q3

REPORT INFORMATION
  Report Type: 
  Country: None (occurrence: None)
  Receive Date: 20110802
  Receipt Date: 20110719
  Transmission Date: 20111222
  Serious: Yes (Other)
  Sender: FDA-Public Use
  Company Number: 2011MA009443

PATIENT
  Age: 39 Year
  Sex: Male

DRUGS (5)
  1. ZOPICLONE (ZOPICLONE) [Suspect]
  2. CLOPIXOL [Concomitant]
  3. DIAZEPAM [Suspect]
  4. CITALOPRAM HYDROBROMIDE [Suspect]
  5. LANSOPRAZOLE [Suspect]

REACTIONS (3)
  - CONFUSIONAL STATE [None]
  - BALANCE DISORDER [None]
  - LOSS OF CONSCIOUSNESS [None]
